FAERS Safety Report 5787154-X (Version None)
Quarter: 2008Q2

REPORT INFORMATION
  Report Type: 
  Country: None (occurrence: None)
  Receive Date: 20080625
  Receipt Date: 20080313
  Transmission Date: 20081010
  Serious: No
  Sender: FDA-Public Use
  Company Number: US-BAUSCH-2008BL001226

PATIENT
  Age: 42 Year
  Sex: Female

DRUGS (1)
  1. ALAWAY [Suspect]
     Indication: EYE ALLERGY
     Route: 047
     Dates: start: 20080310, end: 20080312

REACTIONS (2)
  - EYE PAIN [None]
  - INSTILLATION SITE PAIN [None]
